FAERS Safety Report 8757564 (Version 2)
Quarter: 2012Q4

REPORT INFORMATION
  Report Type: 
  Country: NL (occurrence: NL)
  Receive Date: 20120828
  Receipt Date: 20121003
  Transmission Date: 20130627
  Serious: Yes (Hospitalization)
  Sender: FDA-Public Use
  Company Number: NL-PFIZER INC-2012206299

PATIENT
  Age: 35 Year
  Sex: Female
  Weight: 97 kg

DRUGS (8)
  1. GENOTROPIN [Suspect]
     Indication: GROWTH HORMONE DEFICIENCY
     Dosage: 0.8 mg, 7/wk
     Route: 058
     Dates: start: 20021126
  2. MICROGYNON [Concomitant]
     Indication: BLOOD LUTEINISING HORMONE DECREASED
     Dosage: UNK
     Dates: start: 19990713
  3. MICROGYNON [Concomitant]
     Indication: BLOOD FOLLICLE STIMULATING HORMONE DECREASED
  4. MICROGYNON [Concomitant]
     Indication: HYPOGONADISM FEMALE
  5. DESMOPRESSIN [Concomitant]
     Indication: BLOOD ANTIDIURETIC HORMONE DECREASED
     Dosage: UNK
     Dates: start: 19990817
  6. THYRAX [Concomitant]
     Indication: BLOOD THYROID STIMULATING HORMONE DECREASED
     Dosage: UNK
     Dates: start: 20050521
  7. THYRAX [Concomitant]
     Indication: PRIMARY HYPOTHYROIDISM
  8. CORTISONE ACETATE [Concomitant]
     Indication: BLOOD CORTICOTROPHIN DECREASED
     Dosage: UNK
     Dates: start: 19991026

REACTIONS (2)
  - Breast inflammation [Recovered/Resolved]
  - Breast abscess [Recovered/Resolved]
